FAERS Safety Report 4414502-5 (Version None)
Quarter: 2004Q3

REPORT INFORMATION
  Report Type: 
  Country: None (occurrence: None)
  Receive Date: 20040702
  Receipt Date: 20030618
  Transmission Date: 20050211
  Serious: Yes (Hospitalization)
  Sender: FDA-Public Use
  Company Number: 340452

PATIENT
  Age: 65 Year
  Sex: Female

DRUGS (3)
  1. CLONAZEPAM [Suspect]
     Indication: MUSCLE SPASMS
     Dosage: 0.5 DOSE FORM 2 PER DAY ORAL
     Route: 048
  2. COUMADIN [Concomitant]
  3. VERAPAMIL [Concomitant]

REACTIONS (3)
  - ARTHROPATHY [None]
  - EPISTAXIS [None]
  - TEMPOROMANDIBULAR JOINT SYNDROME [None]
